FAERS Safety Report 8602248-9 (Version None)
Quarter: 2012Q3

REPORT INFORMATION
  Report Type: 
  Country: None (occurrence: None)
  Receive Date: 20120817
  Receipt Date: 20120726
  Transmission Date: 20120928
  Serious: No
  Sender: FDA-Public Use
  Company Number: CA-FRI-1000029686

PATIENT
  Age: 70 Year
  Sex: Female
  Weight: 81.65 kg

DRUGS (11)
  1. VISIONEX [Concomitant]
  2. CALCIUM [Concomitant]
  3. LORAZEPAM [Concomitant]
     Route: 048
  4. ASCORBIC ACID [Concomitant]
  5. APO-TRIAZIDE [Concomitant]
     Dosage: 25 MG
     Route: 048
  6. MULTI-VITAMINS [Concomitant]
  7. CELEXA [Suspect]
     Indication: NERVOUSNESS
     Dosage: 40 MG
     Route: 048
  8. VITAMIN D [Concomitant]
     Dosage: 5000 IU
     Route: 048
  9. NAPROXEN [Concomitant]
     Dosage: 500 MG
  10. CELEXA [Suspect]
     Indication: DEPRESSION
     Dosage: 60 MG
     Route: 048
  11. VITAMIN K TAB [Concomitant]

REACTIONS (9)
  - DYSPNOEA [None]
  - SYNCOPE [None]
  - PALPITATIONS [None]
  - DIZZINESS [None]
  - ANGINA PECTORIS [None]
  - FATIGUE [None]
  - HEART RATE IRREGULAR [None]
  - ASTHENIA [None]
  - HYPERSOMNIA [None]
